FAERS Safety Report 6393618-0 (Version None)
Quarter: 2009Q4

REPORT INFORMATION
  Report Type: 
  Country: None (occurrence: None)
  Receive Date: 20091008
  Receipt Date: 20090929
  Transmission Date: 20100525
  Serious: Yes (Other)
  Sender: FDA-Public Use
  Company Number: JP-PFIZER INC-2009269420

PATIENT
  Age: 38 Year

DRUGS (2)
  1. ZITHROMAC SR [Suspect]
     Indication: RESPIRATORY TRACT INFECTION
     Dosage: 2 G, SINGLE
     Route: 048
     Dates: start: 20090913, end: 20090913
  2. BROCIN [Concomitant]
     Dosage: UNK
     Route: 048
     Dates: start: 20090912, end: 20090913

REACTIONS (1)
  - SHOCK [None]
